FAERS Safety Report 24231967 (Version 1)
Quarter: 2024Q3

REPORT INFORMATION
  Report Type: Spontaneous
  Country: NL (occurrence: NL)
  Receive Date: 20240821
  Receipt Date: 20240821
  Transmission Date: 20241016
  Serious: Yes (Life-Threatening)
  Sender: TEVA
  Company Number: None

PATIENT
  Age: 77 Year
  Sex: Female
  Weight: 71.7 kg

DRUGS (13)
  1. CISPLATIN [Suspect]
     Active Substance: CISPLATIN
     Indication: Non-small cell lung cancer stage IV
     Dosage: TREATMENT BY PULMONOLOGIST IN ST JANSDAL, CISPLATINE INFUUS / BRAND NAME NOT SPECIFIED
     Route: 065
     Dates: start: 20240516, end: 20240627
  2. AMLODIPINE [Concomitant]
     Active Substance: AMLODIPINE BESYLATE
     Indication: Product used for unknown indication
     Dosage: TABLET, 5 MG (MILLIGRAM),  BRAND NAME NOT SPECIFIED
     Route: 065
  3. HYDROCHLOROTHIAZIDE [Concomitant]
     Active Substance: HYDROCHLOROTHIAZIDE
     Indication: Product used for unknown indication
     Dosage: TABLET, 25 MG (MILLIGRAM), BRAND NAME NOT SPECIFIED
     Route: 065
  4. FOLIC ACID [Concomitant]
     Active Substance: FOLIC ACID
     Indication: Product used for unknown indication
     Dosage: TABLET, 0,5 MG (MILLIGRAM), BRAND NAME NOT SPECIFIED
     Route: 065
  5. PANTOPRAZOLE SODIUM [Concomitant]
     Active Substance: PANTOPRAZOLE SODIUM
     Indication: Product used for unknown indication
     Dosage: 40MG 2DD2,  MSR ,BRAND NAME NOT SPECIFIED
     Route: 065
  6. LISINOPRIL [Concomitant]
     Active Substance: LISINOPRIL
     Indication: Product used for unknown indication
     Dosage: TABLET, 10 MG (MILLIGRAM), BRAND NAME NOT SPECIFIED
     Route: 065
  7. APIXABAN [Concomitant]
     Active Substance: APIXABAN
     Indication: Product used for unknown indication
     Dosage: 5MG 2DD2. BRAND NAME NOT SPECIFIED
     Route: 065
  8. SUCRALFATE [Concomitant]
     Active Substance: SUCRALFATE
     Indication: Product used for unknown indication
     Dosage: BAG (GRANULATE), 1 G (GRAM), 4DD1M. BRAND NAME NOT SPECIFIED
     Route: 065
  9. PEMETREXED [Suspect]
     Active Substance: PEMETREXED
     Indication: Non-small cell lung cancer stage IV
     Dosage: NOT KNOWN, PRACTITIONER IS A PULMONOLOGIST IN ST JANSDAL,  PEMETREXED INFUUS / BRAND NAME NOT SPE...
     Route: 065
     Dates: start: 20240516, end: 20240627
  10. PEMBROLIZUMAB [Suspect]
     Active Substance: PEMBROLIZUMAB
     Indication: Non-small cell lung cancer stage IV
     Dosage: NOT KNOWN, PRACTITIONER IS A PULMONOLOGIST IN ST JANSDAL, PEMBROLIZUMAB INFUUS / BRAND NAME NOT S...
     Route: 065
     Dates: start: 20240516, end: 20240627
  11. METOCLOPRAMIDE [Concomitant]
     Active Substance: METOCLOPRAMIDE
     Indication: Product used for unknown indication
     Dosage: 10MG IF NECESSARY 1 TABLET, BRAND NAME NOT SPECIFIED
     Route: 065
  12. ATORVASTATIN [Concomitant]
     Active Substance: ATORVASTATIN
     Indication: Product used for unknown indication
     Dosage: TABLET, 10 MG (MILLIGRAM), BRAND NAME NOT SPECIFIED
     Route: 065
  13. POLYETHYLENE GLYCOLS [Concomitant]
     Active Substance: POLYETHYLENE GLYCOLS
     Indication: Product used for unknown indication
     Dosage: 1/1-2 IF NECESSARY, MACROGOL/SALTING DRINK / BRAND NAME NOT SPECIFIED
     Route: 065

REACTIONS (2)
  - Drug eruption [Recovering/Resolving]
  - Drug eruption [Recovering/Resolving]
